FAERS Safety Report 8063707 (Version 2)
Quarter: 2013Q2

REPORT INFORMATION
  Report Type: Spontaneous
  Country: IT (occurrence: IT)
  Receive Date: 20110801
  Receipt Date: 20130617
  Transmission Date: 20140414
  Serious: No
  Sender: FDA-Public Use
  Company Number: PHHY2011IT65393

PATIENT
  Sex: 0

DRUGS (4)
  1. TASIGNA [Suspect]
     Indication: CHRONIC MYELOID LEUKAEMIA
     Dosage: 800 MG, DAILY
     Route: 048
     Dates: start: 20110208, end: 20110211
  2. ESOMEPRAZOLE [Concomitant]
     Dosage: 40 MG, UNK
  3. SOLOSA [Concomitant]
     Dosage: 4 MG, UNK
  4. METFORMIN [Concomitant]
     Dosage: 1700 MG, UNK

REACTIONS (2)
  - Hyperglycaemia [Recovered/Resolved]
  - Abdominal pain upper [Recovered/Resolved]
